FAERS Safety Report 7381080-0 (Version None)
Quarter: 2011Q1

REPORT INFORMATION
  Report Type: 
  Country: None (occurrence: None)
  Receive Date: 20110329
  Receipt Date: 20100608
  Transmission Date: 20110831
  Serious: No
  Sender: FDA-Public Use
  Company Number: US-AMGEN-KDL417121

PATIENT
  Sex: Female

DRUGS (2)
  1. SENSIPAR [Suspect]
     Indication: HYPERPARATHYROIDISM SECONDARY
     Dosage: 15 MG, BID
  2. ANTIHYPERTENSIVE MEDICATION NOS [Concomitant]

REACTIONS (5)
  - COUGH [None]
  - VOMITING [None]
  - REGURGITATION [None]
  - FATIGUE [None]
  - MUSCULOSKELETAL CHEST PAIN [None]
